FAERS Safety Report 10183336 (Version 1)
Quarter: 2014Q2

REPORT INFORMATION
  Report Type: Spontaneous
  Country: BR (occurrence: BR)
  Receive Date: 20140520
  Receipt Date: 20140520
  Transmission Date: 20141212
  Serious: Yes (Other)
  Sender: FDA-Public Use
  Company Number: BR-PFIZER INC-2014134453

PATIENT
  Age: 45 Year
  Sex: Female
  Weight: 55 kg

DRUGS (5)
  1. LYRICA [Suspect]
     Indication: PAIN
     Dosage: 75 MG (1 CAPSULE), ONCE A DAY
     Route: 048
     Dates: start: 20121206
  2. ALPRAZOLAM [Concomitant]
     Indication: SLEEP DISORDER
     Dosage: 0.5 MG (1 TABLET), DAILY (AT NIGHT)
     Dates: start: 2012
  3. LANSOPRAZOL [Concomitant]
     Indication: CHRONIC GASTRITIS
     Dosage: 30 MG (1 TABLET), ONCE A DAY
     Dates: start: 2013
  4. LIBIAN [Concomitant]
     Indication: HORMONE REPLACEMENT THERAPY
     Dosage: 1 DF (TABLET), DAILY
  5. SIMVASTATIN [Concomitant]
     Indication: BLOOD CHOLESTEROL ABNORMAL
     Dosage: 20 MG (1 TABLET), ONCE A DAY (AT NIGHT)
     Dates: start: 201401

REACTIONS (1)
  - Multiple sclerosis [Unknown]
